FAERS Safety Report 18033415 (Version 3)
Quarter: 2020Q4

REPORT INFORMATION
  Report Type: Report from Study
  Country: US (occurrence: US)
  Receive Date: 20200716
  Receipt Date: 20201113
  Transmission Date: 20210113
  Serious: Yes (Other)
  Sender: FDA-Public Use
  Company Number: US-ASTELLAS-2020US021259

PATIENT
  Age: 77 Year
  Sex: Male

DRUGS (7)
  1. ENZALUTAMIDE [Suspect]
     Active Substance: ENZALUTAMIDE
     Route: 048
     Dates: start: 20200706
  2. LISINOPRIL. [Concomitant]
     Active Substance: LISINOPRIL
     Route: 048
  3. ENZALUTAMIDE [Suspect]
     Active Substance: ENZALUTAMIDE
     Indication: PROSTATE CANCER METASTATIC
     Route: 048
     Dates: start: 201902
  4. LABETALOL [Suspect]
     Active Substance: LABETALOL\LABETALOL HYDROCHLORIDE
     Indication: HYPERTENSION
     Dosage: 100 MG, TWICE DAILY (STARTED 6 MONTHS AGO, PLACED ON HOLD ON 22-JUN-2020)
     Route: 065
     Dates: end: 20200622
  5. LISINOPRIL. [Concomitant]
     Active Substance: LISINOPRIL
     Indication: HYPERTENSION
     Dosage: 20 MG, TWICE DAILY (TAKING FOR 15 YEARS)
     Route: 048
  6. ENZALUTAMIDE [Suspect]
     Active Substance: ENZALUTAMIDE
     Indication: METASTASES TO BONE
     Route: 048
     Dates: start: 20200621, end: 20200622
  7. ENZALUTAMIDE [Suspect]
     Active Substance: ENZALUTAMIDE
     Dosage: UNK, UNKNOWN FREQ.
     Route: 048

REACTIONS (5)
  - Off label use [Unknown]
  - Loss of consciousness [Unknown]
  - Hypotension [Not Recovered/Not Resolved]
  - Product size issue [Unknown]
  - Product availability issue [Unknown]

NARRATIVE: CASE EVENT DATE: 201902
